FAERS Safety Report 19667858 (Version 2)
Quarter: 2021Q3

REPORT INFORMATION
  Report Type: Spontaneous
  Country: US (occurrence: US)
  Receive Date: 20210806
  Receipt Date: 20210811
  Transmission Date: 20211014
  Serious: Yes (Hospitalization)
  Sender: FDA-Public Use
  Company Number: US-AURINIA PHARMACEUTICALS INC.-AUR-000102

PATIENT
  Age: 45 Year
  Sex: Female
  Weight: 148.1 kg

DRUGS (5)
  1. HCQ [Concomitant]
     Active Substance: HYDROXYCHLOROQUINE SULFATE
     Indication: LUPUS NEPHRITIS
     Dosage: 200 MILLIGRAM, BID
  2. LUPKYNIS [Suspect]
     Active Substance: VOCLOSPORIN
     Dosage: 15.8 MILLIGRAM, BID
     Route: 048
     Dates: start: 202106
  3. LUPKYNIS [Suspect]
     Active Substance: VOCLOSPORIN
     Indication: LUPUS NEPHRITIS
     Dosage: 23.7 MILLIGRAM, BID (LOWER TO 15.8 MILLIGRAM BID)
     Route: 048
     Dates: start: 20210415
  4. MMF [Suspect]
     Active Substance: MYCOPHENOLATE MOFETIL
     Indication: LUPUS NEPHRITIS
     Dosage: 1000 MILLIGRAM, BID
  5. PRED [PREDNISOLONE] [Concomitant]
     Indication: LUPUS NEPHRITIS
     Dosage: 10 MILLIGRAM, QD

REACTIONS (4)
  - Neutropenia [Not Recovered/Not Resolved]
  - White blood cell count decreased [Not Recovered/Not Resolved]
  - Mucosal inflammation [Recovered/Resolved]
  - Neutralising antibodies negative [Not Recovered/Not Resolved]

NARRATIVE: CASE EVENT DATE: 20210507
